FAERS Safety Report 6618217-4 (Version None)
Quarter: 2010Q1

REPORT INFORMATION
  Report Type: 
  Country: None (occurrence: None)
  Receive Date: 20100308
  Receipt Date: 20100226
  Transmission Date: 20100710
  Serious: Yes (Hospitalization)
  Sender: FDA-Public Use
  Company Number: FR-PFIZER INC-2009251681

PATIENT
  Age: 67 Year
  Sex: Male

DRUGS (6)
  1. TAHOR [Suspect]
     Dosage: 40 MG, 1X/DAY
     Route: 048
     Dates: start: 20090703, end: 20090713
  2. COVERSYL [Suspect]
     Dosage: 10 MG, 1X/DAY
     Route: 048
     Dates: start: 20090703, end: 20090713
  3. COVERSYL [Suspect]
     Dosage: 5 MG, 1X/DAY
     Route: 048
     Dates: start: 20090627, end: 20090703
  4. PREVISCAN [Suspect]
     Dosage: 20 MG, 1X/DAY
     Route: 048
     Dates: start: 20090625, end: 20090714
  5. LOVENOX [Concomitant]
     Dosage: UNK
     Dates: start: 20090625, end: 20090703
  6. DAIVONEX [Concomitant]
     Dosage: UNK
     Dates: start: 20090625

REACTIONS (5)
  - EOSINOPHILIA [None]
  - FACE OEDEMA [None]
  - HEPATIC ENZYME INCREASED [None]
  - PYREXIA [None]
  - RASH [None]
